FAERS Safety Report 13453818 (Version 1)
Quarter: 2017Q2

REPORT INFORMATION
  Report Type: Spontaneous
  Country: US (occurrence: US)
  Receive Date: 20170418
  Receipt Date: 20170418
  Transmission Date: 20170830
  Serious: No
  Sender: FDA-Public Use
  Company Number: US-ALLERGAN-1651593US

PATIENT
  Sex: Female

DRUGS (1)
  1. LATISSE [Suspect]
     Active Substance: BIMATOPROST
     Indication: GROWTH OF EYELASHES
     Dosage: UNK
     Route: 061
     Dates: start: 201601, end: 201603

REACTIONS (4)
  - Intentional product misuse [Unknown]
  - Erythema of eyelid [Recovered/Resolved]
  - Hair colour changes [Recovered/Resolved]
  - Eyelids pruritus [Recovered/Resolved]
